FAERS Safety Report 24058355 (Version 1)
Quarter: 2024Q3

REPORT INFORMATION
  Report Type: Report from Study
  Country: GB (occurrence: GB)
  Receive Date: 20240708
  Receipt Date: 20240708
  Transmission Date: 20241017
  Serious: Yes (Other)
  Sender: ABBVIE
  Company Number: GB-ABBVIE-5709005

PATIENT
  Sex: Male

DRUGS (1)
  1. SKYRIZI [Suspect]
     Active Substance: RISANKIZUMAB-RZAA
     Indication: Psoriasis
     Route: 058
     Dates: end: 202311

REACTIONS (5)
  - Rash [Unknown]
  - Lymphadenopathy [Unknown]
  - Neck pain [Unknown]
  - Nightmare [Unknown]
  - Arthralgia [Unknown]
